FAERS Safety Report 16353654 (Version 9)
Quarter: 2019Q4

REPORT INFORMATION
  Report Type: Spontaneous
  Country: JP (occurrence: JP)
  Receive Date: 20190524
  Receipt Date: 20191224
  Transmission Date: 20200122
  Serious: Yes (Hospitalization, Other)
  Sender: FDA-Public Use
  Company Number: JP-AMGEN-JPNSP2019053070

PATIENT
  Age: 76 Year
  Sex: Male
  Weight: 61.7 kg

DRUGS (16)
  1. NESP [Concomitant]
     Active Substance: DARBEPOETIN ALFA
     Dosage: 30 MICROGRAM, QWK (30 UG, QW)
     Route: 065
     Dates: start: 20190809
  2. FERROMIA [Concomitant]
     Active Substance: SODIUM FERROUS CITRATE
     Dosage: 50 MILLIGRAM, QD (50 MG, EVERYDAY)
     Route: 048
     Dates: end: 20190110
  3. OXAROL [Concomitant]
     Active Substance: MAXACALCITOL
     Dosage: 2.5 MICROGRAM, 3 TIMES/WK (2.5 UG, Q56H)
     Route: 010
     Dates: start: 20180718, end: 20181012
  4. OXAROL [Concomitant]
     Active Substance: MAXACALCITOL
     Dosage: 2.5 MICROGRAM, 2 TIMES/WK (5 UG, QW)
     Route: 010
     Dates: start: 20181015, end: 20181112
  5. OXAROL [Concomitant]
     Active Substance: MAXACALCITOL
     Dosage: 5 MICROGRAM, 2 TIMES/WK (5 UG, Q84H)
     Route: 010
     Dates: start: 20181114
  6. RIONA [Concomitant]
     Active Substance: FERRIC CITRATE ANHYDROUS
     Dosage: 750 MILLIGRAM, QD (750 MG, EVERYDAY)
     Route: 048
     Dates: start: 20190111
  7. FESIN [SACCHARATED IRON OXIDE] [Concomitant]
     Dosage: 40 MILLIGRAM, QWK (40 MG, QW)
     Dates: start: 20190515, end: 20190729
  8. EPOETIN ALFA [Concomitant]
     Active Substance: ERYTHROPOIETIN
     Dosage: 9000 UNK, QW
     Route: 051
     Dates: start: 20181114, end: 20190206
  9. INSULIN ABBOTT [Concomitant]
     Indication: DIABETES MELLITUS
     Dosage: UNK
     Route: 065
  10. NESP [Concomitant]
     Active Substance: DARBEPOETIN ALFA
     Dosage: 40 MICROGRAM, QWK (40 UG, QW)
     Route: 065
     Dates: start: 20190208, end: 20190802
  11. EPOETIN ALFA [Concomitant]
     Active Substance: ERYTHROPOIETIN
     Dosage: 7500 UNK, QW
     Route: 051
     Dates: start: 20181010, end: 20181112
  12. FOSRENOL [Concomitant]
     Active Substance: LANTHANUM CARBONATE
     Dosage: 750 MILLIGRAM, QD (750 MG, EVERYDAY)
     Route: 048
     Dates: end: 20190110
  13. PARSABIV [Suspect]
     Active Substance: ETELCALCETIDE HYDROCHLORIDE
     Indication: HYPERPARATHYROIDISM SECONDARY
     Dosage: 5 MILLIGRAM, 3 TIMES/WK (5 MG, Q56H)
     Route: 010
     Dates: start: 20180912, end: 20190911
  14. EPOETIN ALFA [Concomitant]
     Active Substance: ERYTHROPOIETIN
     Dosage: 6000 UNK, QWK
     Route: 051
     Dates: end: 20181008
  15. OXAROL [Concomitant]
     Active Substance: MAXACALCITOL
     Dosage: 5 MICROGRAM, QWK
     Route: 010
     Dates: start: 20181015, end: 20181112
  16. OXAROL [Concomitant]
     Active Substance: MAXACALCITOL
     Dosage: 2.5 MICROGRAM, QWK (2.5 UG, QW)
     Route: 010
     Dates: start: 20181114

REACTIONS (4)
  - Muscle spasms [Recovering/Resolving]
  - Ventricular hypokinesia [Not Recovered/Not Resolved]
  - Left ventricular dysfunction [Not Recovered/Not Resolved]
  - Decreased appetite [Not Recovered/Not Resolved]

NARRATIVE: CASE EVENT DATE: 20190221
